FAERS Safety Report 12257318 (Version 1)
Quarter: 2016Q2

REPORT INFORMATION
  Report Type: Spontaneous
  Country: US (occurrence: US)
  Receive Date: 20160412
  Receipt Date: 20160412
  Transmission Date: 20160815
  Serious: No
  Sender: FDA-Public Use
  Company Number: US-BAYER-2016-069735

PATIENT
  Age: 64 Year
  Sex: Male
  Weight: 77.98 kg

DRUGS (1)
  1. ALEVE [Suspect]
     Active Substance: NAPROXEN SODIUM
     Indication: ARTHRITIS
     Dosage: UNK UNK, BID(TAKE TWO IN THE MORNING AND TWO IN THE EVENING)
     Route: 048

REACTIONS (1)
  - Product use issue [None]
